FAERS Safety Report 4619344-3 (Version None)
Quarter: 2005Q1

REPORT INFORMATION
  Report Type: 
  Country: None (occurrence: None)
  Receive Date: 20050325
  Receipt Date: 20050218
  Transmission Date: 20050727
  Serious: Yes (Hospitalization, Disabling)
  Sender: FDA-Public Use
  Company Number: DE-MERCK-0502DEU00137

PATIENT
  Age: 65 Year
  Sex: Male

DRUGS (1)
  1. VIOXX [Suspect]
     Route: 048
     Dates: start: 20000101

REACTIONS (4)
  - ARRHYTHMIA [None]
  - DEEP VEIN THROMBOSIS [None]
  - HYPERTENSION [None]
  - PULMONARY EMBOLISM [None]
